FAERS Safety Report 4544541-5 (Version None)
Quarter: 2005Q1

REPORT INFORMATION
  Report Type: 
  Country: None (occurrence: None)
  Receive Date: 20050105
  Receipt Date: 20030203
  Transmission Date: 20050727
  Serious: Yes (Other)
  Sender: FDA-Public Use
  Company Number: PHBS2003BR01503

PATIENT
  Age: 43 Year
  Sex: Male
  Weight: 85 kg

DRUGS (3)
  1. LEPONEX [Suspect]
     Indication: SCHIZOPHRENIA
     Dosage: 50 MG/D
     Route: 048
     Dates: start: 20030101
  2. LEPONEX [Suspect]
     Dosage: 450 MG/D
     Route: 048
     Dates: end: 20030101
  3. AMPLICTIL [Concomitant]
     Indication: SCHIZOPHRENIA
     Dosage: 100 MG/D
     Route: 048

REACTIONS (9)
  - CONFUSIONAL STATE [None]
  - DYSPHONIA [None]
  - ERECTILE DYSFUNCTION [None]
  - INFECTION [None]
  - LIBIDO DECREASED [None]
  - MOTOR DYSFUNCTION [None]
  - PAIN IN EXTREMITY [None]
  - RASH [None]
  - THROAT IRRITATION [None]
